FAERS Safety Report 10177248 (Version 2)
Quarter: 2014Q2

REPORT INFORMATION
  Report Type: Spontaneous
  Country: US (occurrence: US)
  Receive Date: 20140516
  Receipt Date: 20140623
  Transmission Date: 20141212
  Serious: Yes (Hospitalization)
  Sender: FDA-Public Use
  Company Number: US-GLAXOSMITHKLINE-A1072821A

PATIENT
  Age: 73 Year
  Sex: Female

DRUGS (20)
  1. LOVAZA [Suspect]
     Indication: CARDIAC DISORDER
     Dosage: 6CAP PER DAY
     Route: 048
     Dates: start: 2011
  2. PLAQUENIL [Concomitant]
  3. ZINC [Concomitant]
  4. ZYRTEC [Concomitant]
  5. LANOXIN [Concomitant]
  6. MULTIVITAMIN [Concomitant]
  7. POTASSIUM [Concomitant]
  8. CALTRATE + D [Concomitant]
  9. LIPITOR [Concomitant]
  10. CALCITRIOL [Concomitant]
  11. FOLIC ACID [Concomitant]
  12. MECLIZINE [Concomitant]
  13. CARVEDILOL [Concomitant]
  14. FUROSEMIDE [Concomitant]
  15. SEROQUEL [Concomitant]
  16. METOLAZONE [Concomitant]
  17. FERROUS SULFATE [Concomitant]
  18. PREDNISONE [Concomitant]
  19. TYLENOL [Concomitant]
  20. NEXIUM [Concomitant]

REACTIONS (2)
  - Hip fracture [Recovering/Resolving]
  - Therapeutic response changed [Unknown]
